FAERS Safety Report 15009367 (Version 1)
Quarter: 2018Q2

REPORT INFORMATION
  Report Type: Spontaneous
  Country: IE (occurrence: IE)
  Receive Date: 20180614
  Receipt Date: 20180614
  Transmission Date: 20180711
  Serious: Yes (Death)
  Sender: FDA-Public Use
  Company Number: IE-TEVA-2018-IE-907928

PATIENT
  Age: 40 Year
  Sex: Female
  Weight: 50.85 kg

DRUGS (2)
  1. ESCITALOPRAM [Suspect]
     Active Substance: ESCITALOPRAM OXALATE
     Indication: DEPRESSION
     Route: 065
     Dates: start: 20180211, end: 20180312
  2. ESCITALOPRAM [Suspect]
     Active Substance: ESCITALOPRAM OXALATE
     Dosage: DURATION: 10MG FOR 1 MONTH MOVED TO 15MG FOR 1 MONTH.
     Route: 048
     Dates: start: 20180312, end: 20180411

REACTIONS (1)
  - Completed suicide [Fatal]

NARRATIVE: CASE EVENT DATE: 20180411
